FAERS Safety Report 8602476-2 (Version None)
Quarter: 2012Q3

REPORT INFORMATION
  Report Type: 
  Country: None (occurrence: None)
  Receive Date: 20120817
  Receipt Date: 20120112
  Transmission Date: 20120928
  Serious: Yes (Hospitalization)
  Sender: FDA-Public Use
  Company Number: US-ROCHE-1100864

PATIENT
  Sex: Male

DRUGS (3)
  1. HEPARIN [Concomitant]
  2. NITROGLYCERIN [Concomitant]
  3. ACTIVASE [Suspect]
     Indication: ACUTE MYOCARDIAL INFARCTION
     Dates: start: 19961016

REACTIONS (1)
  - MYOCARDIAL STUNNING [None]
